FAERS Safety Report 18848125 (Version 2)
Quarter: 2021Q1

REPORT INFORMATION
  Report Type: Report from Study
  Country: US (occurrence: US)
  Receive Date: 20210204
  Receipt Date: 20210311
  Transmission Date: 20210419
  Serious: Yes (Other)
  Sender: FDA-Public Use
  Company Number: US-BAYER-2021-041783

PATIENT
  Sex: Male

DRUGS (1)
  1. NEXAVAR [Suspect]
     Active Substance: SORAFENIB
     Indication: HEPATOCELLULAR CARCINOMA
     Dosage: 400 MG, BID
     Route: 048
     Dates: start: 20201208

REACTIONS (5)
  - Metastasis [Not Recovered/Not Resolved]
  - Hypersomnia [Unknown]
  - Decreased activity [None]
  - Skin lesion [Recovering/Resolving]
  - Fatigue [Unknown]
